FAERS Safety Report 18850451 (Version 1)
Quarter: 2021Q1

REPORT INFORMATION
  Report Type: Spontaneous
  Country: FR (occurrence: FR)
  Receive Date: 20210205
  Receipt Date: 20210205
  Transmission Date: 20210420
  Serious: Yes (Life-Threatening)
  Sender: FDA-Public Use
  Company Number: FR-TEVA-2021-FR-1877713

PATIENT
  Age: 15 Year
  Sex: Female
  Weight: 57 kg

DRUGS (4)
  1. ANTADYS [Suspect]
     Active Substance: FLURBIPROFEN
     Indication: DYSMENORRHOEA
     Route: 048
     Dates: start: 20200925, end: 20200927
  2. SPASFON [Concomitant]
  3. TARDYFERON [Concomitant]
     Active Substance: FERROUS SULFATE
     Indication: IRON DEFICIENCY ANAEMIA
     Route: 048
     Dates: start: 202006
  4. DOLIPRANE [Concomitant]
     Active Substance: ACETAMINOPHEN

REACTIONS (4)
  - Abdominal pain upper [Recovered/Resolved]
  - Gastric ulcer [Unknown]
  - Hypotension [Recovered/Resolved]
  - Haematemesis [Recovered/Resolved]

NARRATIVE: CASE EVENT DATE: 20200927
